FAERS Safety Report 7132205-3 (Version None)
Quarter: 2010Q4

REPORT INFORMATION
  Report Type: 
  Country: None (occurrence: None)
  Receive Date: 20101129
  Receipt Date: 20101129
  Transmission Date: 20110411
  Serious: Yes (Life-Threatening)
  Sender: FDA-Public Use
  Company Number: None

PATIENT
  Sex: Female
  Weight: 66.6788 kg

DRUGS (1)
  1. CEFTRIAXONE [Suspect]
     Indication: URINARY TRACT INFECTION
     Dosage: 1GM IM
     Route: 030
     Dates: start: 20101025

REACTIONS (3)
  - BURNING SENSATION [None]
  - THROAT TIGHTNESS [None]
  - URTICARIA [None]
